FAERS Safety Report 6146038-8 (Version None)
Quarter: 2009Q2

REPORT INFORMATION
  Report Type: 
  Country: None (occurrence: None)
  Receive Date: 20090407
  Receipt Date: 20090326
  Transmission Date: 20091009
  Serious: Yes (Hospitalization)
  Sender: FDA-Public Use
  Company Number: US-ELI_LILLY_AND_COMPANY-US200903006907

PATIENT
  Sex: Female

DRUGS (1)
  1. EVISTA [Suspect]
     Dosage: 60 MG, UNKNOWN
     Route: 065

REACTIONS (2)
  - ARTHRITIS [None]
  - HOSPITALISATION [None]
